FAERS Safety Report 6030133-8 (Version None)
Quarter: 2009Q1

REPORT INFORMATION
  Report Type: 
  Country: None (occurrence: None)
  Receive Date: 20090107
  Receipt Date: 20090106
  Transmission Date: 20090719
  Serious: Yes (Hospitalization)
  Sender: FDA-Public Use
  Company Number: US-MERCK-0812USA04748

PATIENT
  Age: 78 Year
  Sex: Female

DRUGS (1)
  1. JANUMET [Suspect]
     Indication: TYPE 2 DIABETES MELLITUS
     Route: 048
     Dates: start: 20080101

REACTIONS (4)
  - BRONCHITIS [None]
  - COUGH [None]
  - NASOPHARYNGITIS [None]
  - PNEUMONIA [None]
